FAERS Safety Report 9437397 (Version 2)
Quarter: 2013Q3

REPORT INFORMATION
  Report Type: Spontaneous
  Country: US (occurrence: US)
  Receive Date: 20130802
  Receipt Date: 20130808
  Transmission Date: 20140515
  Serious: Yes (Hospitalization)
  Sender: FDA-Public Use
  Company Number: US-ROCHE-1243688

PATIENT
  Age: 79 Year
  Sex: Male
  Weight: 58 kg

DRUGS (6)
  1. LUCENTIS [Suspect]
     Indication: AGE-RELATED MACULAR DEGENERATION
     Route: 050
     Dates: start: 20120827
  2. LUCENTIS [Suspect]
     Route: 050
     Dates: start: 20120927
  3. LUCENTIS [Suspect]
     Route: 050
     Dates: start: 20120612, end: 20130617
  4. PRAVASTATIN SODIUM [Concomitant]
  5. INSULIN [Concomitant]
  6. PRAVASTATIN SODIUM [Concomitant]

REACTIONS (3)
  - Cerebral infarction [Unknown]
  - Hypoaesthesia [Unknown]
  - Nausea [Unknown]
